FAERS Safety Report 8816927 (Version 1)
Quarter: 2012Q4

REPORT INFORMATION
  Report Type: Spontaneous
  Country: US (occurrence: None)
  Receive Date: 20121002
  Receipt Date: 20121002
  Transmission Date: 20130627
  Serious: Yes (Life-Threatening, Hospitalization, Disabling, Other)
  Sender: FDA-Public Use
  Company Number: None

PATIENT
  Age: 69 Year
  Sex: Male
  Weight: 55.79 kg

DRUGS (1)
  1. PROZAC [Suspect]

REACTIONS (4)
  - Dysphagia [None]
  - Aphagia [None]
  - Gingival abscess [None]
  - Abscess oral [None]
